FAERS Safety Report 10008821 (Version 2)
Quarter: 2014Q3

REPORT INFORMATION
  Report Type: Report from Study
  Country: US (occurrence: US)
  Receive Date: 20140313
  Receipt Date: 20140725
  Transmission Date: 20150326
  Serious: Yes (Hospitalization)
  Sender: FDA-Public Use
  Company Number: US-ABBVIE-14P-163-1209017-00

PATIENT
  Age: 49 Year
  Sex: Female
  Weight: 110.78 kg

DRUGS (11)
  1. HUMIRA [Suspect]
     Active Substance: ADALIMUMAB
     Dates: start: 2013, end: 2013
  2. HUMIRA [Suspect]
     Active Substance: ADALIMUMAB
     Dates: start: 2013, end: 201310
  3. REMICADE [Suspect]
     Active Substance: INFLIXIMAB
     Indication: RECTAL HAEMORRHAGE
     Dates: start: 201310
  4. UNNAMED STEROID [Suspect]
     Active Substance: UNSPECIFIED INGREDIENT
     Indication: RECTAL HAEMORRHAGE
     Route: 042
     Dates: start: 201310, end: 201310
  5. EQUATE ALLERGY RELIEF [Concomitant]
     Active Substance: CETIRIZINE HYDROCHLORIDE\DIPHENHYDRAMINE HYDROCHLORIDE\FEXOFENADINE HYDROCHLORIDE\LORATADINE
     Indication: HYPERSENSITIVITY
  6. HUMIRA [Suspect]
     Active Substance: ADALIMUMAB
     Dates: start: 201310
  7. NATURES BOUNTY HAIR SKIN AND NAILS [Concomitant]
     Indication: ALOPECIA
  8. HUMIRA [Suspect]
     Active Substance: ADALIMUMAB
     Indication: COLITIS ULCERATIVE
     Dosage: ONE DOSE
  9. CULTURELLE PROBIOTIC [Concomitant]
     Indication: COLITIS ULCERATIVE
  10. TRAZODONE [Concomitant]
     Active Substance: TRAZODONE HYDROCHLORIDE
     Indication: INSOMNIA
  11. FLEXERIL [Concomitant]
     Active Substance: CYCLOBENZAPRINE HYDROCHLORIDE
     Indication: MUSCLE SPASMS

REACTIONS (12)
  - Gastritis [Unknown]
  - Loss of consciousness [Recovered/Resolved]
  - Gastrointestinal inflammation [Unknown]
  - Pyrexia [Recovered/Resolved]
  - Rectal haemorrhage [Recovered/Resolved]
  - Alopecia [Not Recovered/Not Resolved]
  - Oral herpes [Not Recovered/Not Resolved]
  - Blood glucose increased [Recovered/Resolved]
  - Rectal haemorrhage [Recovered/Resolved]
  - Depressed mood [Recovered/Resolved]
  - Depression [Unknown]
  - Colitis ulcerative [Unknown]

NARRATIVE: CASE EVENT DATE: 2013
